FAERS Safety Report 15383677 (Version 2)
Quarter: 2018Q4

REPORT INFORMATION
  Report Type: Spontaneous
  Country: US (occurrence: US)
  Receive Date: 20180913
  Receipt Date: 20181007
  Transmission Date: 20190204
  Serious: Yes (Hospitalization)
  Sender: FDA-Public Use
  Company Number: US-CELGENEUS-USA-20180809481

PATIENT
  Age: 62 Year
  Sex: Male
  Weight: 71.28 kg

DRUGS (1)
  1. REVLIMID [Suspect]
     Active Substance: LENALIDOMIDE
     Indication: PLASMA CELL MYELOMA
     Dosage: 5 MILLIGRAM
     Route: 048
     Dates: start: 20180811

REACTIONS (4)
  - Rash [Not Recovered/Not Resolved]
  - Disease complication [Unknown]
  - Adverse event [Unknown]
  - Swelling [Unknown]

NARRATIVE: CASE EVENT DATE: 201808
